FAERS Safety Report 7373048-5 (Version None)
Quarter: 2011Q1

REPORT INFORMATION
  Report Type: 
  Country: None (occurrence: None)
  Receive Date: 20110324
  Receipt Date: 20110321
  Transmission Date: 20110831
  Serious: Yes (Life-Threatening)
  Sender: FDA-Public Use
  Company Number: GB-TEVA-272674ISR

PATIENT
  Age: 54 Year
  Sex: Female

DRUGS (2)
  1. METHADONE [Suspect]
     Indication: PAIN
     Route: 048
     Dates: start: 20101120
  2. FLUCONAZOLE [Suspect]
     Indication: CANDIDIASIS
     Route: 048
     Dates: start: 20110222, end: 20110225

REACTIONS (2)
  - RESPIRATORY DEPRESSION [None]
  - RESPIRATORY FAILURE [None]
